FAERS Safety Report 20575223 (Version 2)
Quarter: 2022Q1

REPORT INFORMATION
  Report Type: Report from Study
  Country: GB (occurrence: GB)
  Receive Date: 20220310
  Receipt Date: 20220311
  Transmission Date: 20220423
  Serious: Yes (Life-Threatening, Hospitalization)
  Sender: FDA-Public Use
  Company Number: GB-JNJFOC-20211214120

PATIENT
  Age: 73 Year
  Sex: Male

DRUGS (1)
  1. ERLEADA [Suspect]
     Active Substance: APALUTAMIDE
     Indication: Prostate cancer metastatic
     Route: 048
     Dates: start: 20211125

REACTIONS (5)
  - Mesothelioma [Not Recovered/Not Resolved]
  - Hypertension [Recovering/Resolving]
  - Paraesthesia [Recovered/Resolved]
  - Blood calcium abnormal [Unknown]
  - Blood albumin abnormal [Unknown]

NARRATIVE: CASE EVENT DATE: 20210101
